FAERS Safety Report 7780656-6 (Version None)
Quarter: 2011Q3

REPORT INFORMATION
  Report Type: 
  Country: None (occurrence: None)
  Receive Date: 20110927
  Receipt Date: 20110222
  Transmission Date: 20111222
  Serious: No
  Sender: FDA-Public Use
  Company Number: US-BRISTOL-MYERS SQUIBB COMPANY-15562218

PATIENT
  Age: 62 Year
  Sex: Female
  Weight: 68 kg

DRUGS (2)
  1. AVALIDE [Suspect]
  2. AVAPRO [Suspect]
     Dosage: ALSO HAD AVAPRO 150 BUT THEN STOPPED
     Dates: start: 20101101

REACTIONS (2)
  - VERTIGO [None]
  - RASH [None]
